FAERS Safety Report 23281125 (Version 1)
Quarter: 2023Q4

REPORT INFORMATION
  Report Type: Spontaneous
  Country: JP (occurrence: JP)
  Receive Date: 20231211
  Receipt Date: 20231211
  Transmission Date: 20240110
  Serious: Yes (Hospitalization, Other)
  Sender: FDA-Public Use
  Company Number: JP-TAKEDA-2023TJP016461

PATIENT
  Age: 17 Year
  Sex: Male

DRUGS (1)
  1. INTUNIV [Suspect]
     Active Substance: GUANFACINE HYDROCHLORIDE
     Indication: Product used for unknown indication
     Dosage: 226 DOSAGE FORM
     Route: 048

REACTIONS (7)
  - Toxicity to various agents [Recovering/Resolving]
  - Pulmonary oedema [Recovering/Resolving]
  - Cardiac dysfunction [Recovering/Resolving]
  - Suicide attempt [Unknown]
  - Restlessness [Unknown]
  - Agitation [Recovered/Resolved]
  - Intentional overdose [Unknown]
